FAERS Safety Report 14038930 (Version 3)
Quarter: 2017Q4

REPORT INFORMATION
  Report Type: Spontaneous
  Country: US (occurrence: US)
  Receive Date: 20171004
  Receipt Date: 20171107
  Transmission Date: 20180321
  Serious: Yes (Hospitalization)
  Sender: FDA-Public Use
  Company Number: US-JNJFOC-20170931356

PATIENT
  Age: 4 Year
  Sex: Male

DRUGS (15)
  1. RITALIN [Suspect]
     Active Substance: METHYLPHENIDATE HYDROCHLORIDE
     Indication: ATTENTION DEFICIT/HYPERACTIVITY DISORDER
     Dosage: 5 TO 10 MG
     Route: 065
  2. QUETIAPINE. [Suspect]
     Active Substance: QUETIAPINE
     Indication: ABNORMAL BEHAVIOUR
     Route: 065
  3. GUANFACINE. [Concomitant]
     Active Substance: GUANFACINE
     Indication: AFFECTIVE DISORDER
     Dosage: 0.25 TO 2 MG
     Route: 065
  4. AMPHETAMINE [Concomitant]
     Active Substance: AMPHETAMINE
     Indication: ATTENTION DEFICIT/HYPERACTIVITY DISORDER
     Route: 065
  5. FLUOXETINE [Suspect]
     Active Substance: FLUOXETINE HYDROCHLORIDE
     Indication: ANXIETY
     Dosage: 5 TO 10 MG
     Route: 065
  6. QUETIAPINE. [Suspect]
     Active Substance: QUETIAPINE
     Indication: ABNORMAL BEHAVIOUR
     Route: 065
  7. RISPERIDONE. [Suspect]
     Active Substance: RISPERIDONE
     Indication: ABNORMAL BEHAVIOUR
     Route: 065
  8. ARIPIPRAZOLE. [Suspect]
     Active Substance: ARIPIPRAZOLE
     Indication: ABNORMAL BEHAVIOUR
     Dosage: 1 TO 10 MG
     Route: 065
  9. GUANFACINE. [Concomitant]
     Active Substance: GUANFACINE
     Indication: DISRUPTIVE MOOD DYSREGULATION DISORDER
     Dosage: 0.25 TO 2 MG
     Route: 065
  10. MELATONIN [Concomitant]
     Active Substance: MELATONIN
     Indication: INSOMNIA
     Dosage: 2.5 MG TO 10 MG
     Route: 065
  11. THIORIDAZINE [Suspect]
     Active Substance: THIORIDAZINE
     Indication: ABNORMAL BEHAVIOUR
     Route: 065
  12. GUANFACINE. [Concomitant]
     Active Substance: GUANFACINE
     Indication: ATTENTION DEFICIT/HYPERACTIVITY DISORDER
     Dosage: 0.25 TO 2 MG
     Route: 065
  13. RISPERIDONE. [Suspect]
     Active Substance: RISPERIDONE
     Indication: ABNORMAL BEHAVIOUR
     Route: 065
  14. DEPAKOTE [Suspect]
     Active Substance: DIVALPROEX SODIUM
     Indication: SEIZURE
     Dosage: 375 TO 500 MG
     Route: 065
  15. TOPIRAMATE. [Concomitant]
     Active Substance: TOPIRAMATE
     Indication: INSOMNIA
     Route: 065

REACTIONS (3)
  - Off label use [Unknown]
  - Drug administered to patient of inappropriate age [Unknown]
  - Aggression [Unknown]
